FAERS Safety Report 24263275 (Version 1)
Quarter: 2024Q3

REPORT INFORMATION
  Report Type: Spontaneous
  Country: FR (occurrence: FR)
  Receive Date: 20240829
  Receipt Date: 20240829
  Transmission Date: 20241017
  Serious: Yes (Hospitalization)
  Sender: BAYER
  Company Number: None

PATIENT
  Age: 82 Year
  Sex: Male

DRUGS (2)
  1. CIPROFLOXACIN [Suspect]
     Active Substance: CIPROFLOXACIN
     Indication: Osteitis
     Route: 048
     Dates: start: 20240717
  2. LINEZOLID [Concomitant]
     Active Substance: LINEZOLID
     Indication: Osteitis
     Dosage: 1.2 G, QD
     Route: 048
     Dates: start: 20240716, end: 20240806

REACTIONS (2)
  - Lactic acidosis [None]
  - Pancytopenia [None]

NARRATIVE: CASE EVENT DATE: 20240807
